FAERS Safety Report 5444625-3 (Version None)
Quarter: 2007Q3

REPORT INFORMATION
  Report Type: 
  Country: None (occurrence: None)
  Receive Date: 20070906
  Receipt Date: 20070903
  Transmission Date: 20080115
  Serious: Yes (Other)
  Sender: FDA-Public Use
  Company Number: FRWYE263404SEP07

PATIENT
  Sex: Female

DRUGS (2)
  1. ADVIL LIQUI-GELS [Suspect]
     Indication: PAIN
     Dosage: 40 MG DAILY IF NECESSARY
     Route: 048
     Dates: start: 20070808, end: 20070825
  2. AUGMENTIN '125' [Concomitant]
     Indication: BARTHOLINITIS
     Dosage: 1000 MG TOTAL DAILY
     Route: 048
     Dates: start: 20070808, end: 20070813

REACTIONS (3)
  - BURNS SECOND DEGREE [None]
  - PHOTOSENSITIVITY REACTION [None]
  - WHITE BLOOD CELL COUNT INCREASED [None]
